FAERS Safety Report 5066863-4 (Version None)
Quarter: 2006Q3

REPORT INFORMATION
  Report Type: 
  Country: None (occurrence: None)
  Receive Date: 20060728
  Receipt Date: 20060714
  Transmission Date: 20061208
  Serious: Yes (Other)
  Sender: FDA-Public Use
  Company Number: 2840

PATIENT
  Age: 24 Year
  Sex: Female

DRUGS (1)
  1. AMNESTEEM [Suspect]
     Dosage: 40 MG, BID, PO
     Route: 048
     Dates: start: 20060303, end: 20060711

REACTIONS (2)
  - DRUG EXPOSURE DURING PREGNANCY [None]
  - PREGNANCY [None]
